FAERS Safety Report 6024487-6 (Version None)
Quarter: 2008Q4

REPORT INFORMATION
  Report Type: 
  Country: None (occurrence: None)
  Receive Date: 20081231
  Receipt Date: 20080916
  Transmission Date: 20090506
  Serious: No
  Sender: FDA-Public Use
  Company Number: US-BRISTOL-MYERS SQUIBB COMPANY-14329775

PATIENT
  Sex: Female

DRUGS (1)
  1. ORENCIA [Suspect]
     Dosage: 2ND INFUSION:14JUL08 3RD INFUSION:28JUL08 4TH INFUSION:25AUG08.
     Dates: start: 20080630

REACTIONS (8)
  - ASTHENIA [None]
  - CHROMATOPSIA [None]
  - INFUSION RELATED REACTION [None]
  - RASH [None]
  - SWELLING [None]
  - TREMOR [None]
  - UPPER RESPIRATORY TRACT INFECTION [None]
  - WEIGHT INCREASED [None]
